FAERS Safety Report 21350340 (Version 1)
Quarter: 2022Q3

REPORT INFORMATION
  Report Type: Spontaneous
  Country: US (occurrence: None)
  Receive Date: 20220918
  Receipt Date: 20220918
  Transmission Date: 20221026
  Serious: Yes (unspecified)
  Sender: FDA-Public Use
  Company Number: None

PATIENT
  Age: 11 Year
  Sex: Male
  Weight: 47.7 kg

DRUGS (2)
  1. OSELTAMIVIR PHOSPHATE [Suspect]
     Active Substance: OSELTAMIVIR PHOSPHATE
     Indication: Influenza
     Dosage: OTHER QUANTITY : 12.5 ML?FREQUENCY : TWICE A DAY?
     Route: 048
     Dates: start: 20220918, end: 20220918
  2. VITAMINS [Concomitant]
     Active Substance: VITAMINS

REACTIONS (5)
  - Disorientation [None]
  - Abnormal behaviour [None]
  - Screaming [None]
  - Nightmare [None]
  - Hallucination [None]

NARRATIVE: CASE EVENT DATE: 20220918
